FAERS Safety Report 4973942-6 (Version None)
Quarter: 2006Q2

REPORT INFORMATION
  Report Type: 
  Country: None (occurrence: None)
  Receive Date: 20060417
  Receipt Date: 20060404
  Transmission Date: 20061013
  Serious: Yes (Other)
  Sender: FDA-Public Use
  Company Number: 2006GB00560

PATIENT
  Age: 74 Year
  Sex: Female

DRUGS (8)
  1. LIDOCAINE [Suspect]
     Indication: CATARACT OPERATION
     Route: 065
  2. BUPIVACAINE [Suspect]
     Indication: CATARACT OPERATION
     Route: 065
  3. HYALURONIDASE [Suspect]
     Route: 065
  4. PROXYMETACAINE [Suspect]
     Route: 047
  5. POVIDONE IODINE [Suspect]
     Route: 065
  6. CEFUROXIME [Suspect]
     Route: 057
  7. PREDNISOLONE [Suspect]
     Route: 047
  8. CHLORAMPHENICOL [Suspect]
     Route: 047

REACTIONS (4)
  - CONJUNCTIVAL OEDEMA [None]
  - EXOPHTHALMOS [None]
  - INTRAOCULAR PRESSURE INCREASED [None]
  - PAROPHTHALMIA [None]
